FAERS Safety Report 14749595 (Version 2)
Quarter: 2018Q2

REPORT INFORMATION
  Report Type: Spontaneous
  Country: JP (occurrence: JP)
  Receive Date: 20180411
  Receipt Date: 20180423
  Transmission Date: 20180711
  Serious: Yes (Other)
  Sender: FDA-Public Use
  Company Number: JP-SHIRE-JP201812813AA

PATIENT
  Age: 26 Year
  Sex: Male

DRUGS (1)
  1. FEIBA NF [Suspect]
     Active Substance: ANTI-INHIBITOR COAGULANT COMPLEX
     Indication: FACTOR IX DEFICIENCY
     Dosage: UNK
     Route: 065

REACTIONS (6)
  - Haemophilic arthropathy [Unknown]
  - Intra-abdominal haemorrhage [Unknown]
  - Dental caries [Unknown]
  - Anaphylactic reaction [Unknown]
  - Shock haemorrhagic [Unknown]
  - Obesity [Unknown]
